FAERS Safety Report 5025235-9 (Version None)
Quarter: 2006Q2

REPORT INFORMATION
  Report Type: 
  Country: None (occurrence: None)
  Receive Date: 20060609
  Receipt Date: 20060609
  Transmission Date: 20061013
  Serious: Yes (Disabling)
  Sender: FDA-Public Use
  Company Number: None

PATIENT
  Sex: Female
  Weight: 70.3075 kg

DRUGS (3)
  1. SEROQUEL [Suspect]
     Indication: ANXIETY
     Dosage: 100 TO 300 MG AT NIGHT FOR SLEEP
  2. SEROQUEL [Suspect]
     Indication: DEPRESSION
     Dosage: 100 TO 300 MG AT NIGHT FOR SLEEP
  3. SEROQUEL [Suspect]
     Indication: SLEEP DISORDER
     Dosage: 100 TO 300 MG AT NIGHT FOR SLEEP

REACTIONS (1)
  - DIABETES MELLITUS [None]
